FAERS Safety Report 24113605 (Version 3)
Quarter: 2024Q4

REPORT INFORMATION
  Report Type: Report from Study
  Country: CA (occurrence: CA)
  Receive Date: 20240720
  Receipt Date: 20241009
  Transmission Date: 20250115
  Serious: Yes (Life-Threatening, Hospitalization, Other)
  Sender: JOHNSON AND JOHNSON
  Company Number: CA-JNJFOC-20240389345

PATIENT
  Age: 76 Year
  Sex: Male
  Weight: 50 kg

DRUGS (14)
  1. STELARA [Suspect]
     Active Substance: USTEKINUMAB
     Indication: Crohn^s disease
     Route: 058
     Dates: start: 20220204
  2. STELARA [Suspect]
     Active Substance: USTEKINUMAB
     Route: 058
  3. STELARA [Suspect]
     Active Substance: USTEKINUMAB
     Dosage: DATE OF TREATMENT: 04-OCT-2024
     Route: 058
  4. ASPIRIN [Concomitant]
     Active Substance: ASPIRIN
  5. AMLODIPINE [Concomitant]
     Active Substance: AMLODIPINE BESYLATE
  6. MAGNESIUM CITRATE [Concomitant]
     Active Substance: MAGNESIUM CITRATE
  7. METOPROLOL [Concomitant]
     Active Substance: METOPROLOL
  8. PANTOPRAZOLE [Concomitant]
     Active Substance: PANTOPRAZOLE
  9. PHOSPHORUS [Concomitant]
     Active Substance: PHOSPHORUS
  10. POTASSIUM CHLORIDE [Concomitant]
     Active Substance: POTASSIUM CHLORIDE
  11. PROLIA [Concomitant]
     Active Substance: DENOSUMAB
  12. CRESTOR [Concomitant]
     Active Substance: ROSUVASTATIN CALCIUM
  13. SUCRALFATE [Concomitant]
     Active Substance: SUCRALFATE
  14. CHOLESTYRAMINE [Concomitant]
     Active Substance: CHOLESTYRAMINE

REACTIONS (8)
  - Pulmonary haemorrhage [Unknown]
  - Diverticulitis [Recovered/Resolved]
  - Clostridium difficile infection [Recovered/Resolved]
  - Pneumonia [Unknown]
  - Acidosis [Unknown]
  - Crohn^s disease [Unknown]
  - Delirium [Recovering/Resolving]
  - Mobility decreased [Recovering/Resolving]

NARRATIVE: CASE EVENT DATE: 20240101
